FAERS Safety Report 25843636 (Version 7)
Quarter: 2025Q4

REPORT INFORMATION
  Report Type: Spontaneous
  Country: US (occurrence: US)
  Receive Date: 20250924
  Receipt Date: 20251020
  Transmission Date: 20260117
  Serious: No
  Sender: SANDOZ
  Company Number: US-002147023-NVSC2025US146484

PATIENT
  Age: 85 Year
  Sex: Female
  Weight: 49.4 kg

DRUGS (8)
  1. AZITHROMYCIN [Suspect]
     Active Substance: AZITHROMYCIN
     Indication: Mycobacterial infection
     Dosage: 600 MG
     Route: 048
     Dates: start: 20250818, end: 20250823
  2. AZITHROMYCIN [Suspect]
     Active Substance: AZITHROMYCIN
     Dosage: 600 MG
     Route: 048
     Dates: start: 202509
  3. CLARITHROMYCIN [Suspect]
     Active Substance: CLARITHROMYCIN
     Indication: Mycobacterial infection
     Dosage: UNK
     Route: 048
     Dates: start: 20250818, end: 20250823
  4. CLARITHROMYCIN [Suspect]
     Active Substance: CLARITHROMYCIN
     Dosage: UNK
     Route: 048
     Dates: start: 20250901, end: 20251001
  5. ETHAMBUTOL [Suspect]
     Active Substance: ETHAMBUTOL HYDROCHLORIDE
     Indication: Mycobacterial infection
     Dosage: UNK
     Route: 048
     Dates: start: 20250818
  6. ETHAMBUTOL [Suspect]
     Active Substance: ETHAMBUTOL HYDROCHLORIDE
     Dosage: UNK (RESTARTED AGAIN)
     Route: 048
     Dates: start: 20250904
  7. LAMPRENE [Suspect]
     Active Substance: CLOFAZIMINE
     Indication: Mycobacterial infection
     Dosage: 100 MG, QD
     Route: 048
     Dates: start: 20250818, end: 20250823
  8. LAMPRENE [Suspect]
     Active Substance: CLOFAZIMINE
     Dosage: 100 MG, QD (RESTARTED AGAIN)
     Route: 048
     Dates: start: 20250829, end: 20251001

REACTIONS (12)
  - Pollakiuria [Recovered/Resolved]
  - Pollakiuria [Recovered/Resolved]
  - Bladder irritation [Recovered/Resolved]
  - Bladder irritation [Recovered/Resolved]
  - Urinary tract disorder [Unknown]
  - Discomfort [Unknown]
  - Dysgeusia [Unknown]
  - Dry mouth [Recovered/Resolved]
  - Dry mouth [Recovered/Resolved]
  - Dyspepsia [Unknown]
  - Nausea [Unknown]
  - Drug intolerance [Unknown]

NARRATIVE: CASE EVENT DATE: 20250818
